FAERS Safety Report 9444027 (Version 2)
Quarter: 2013Q3

REPORT INFORMATION
  Report Type: Spontaneous
  Country: GB (occurrence: GB)
  Receive Date: 20130807
  Receipt Date: 20130910
  Transmission Date: 20140515
  Serious: Yes (Disabling)
  Sender: FDA-Public Use
  Company Number: GB-ABBOTT-13X-167-1129294-00

PATIENT
  Age: 78 Year
  Sex: Female

DRUGS (1)
  1. EPILIM [Suspect]
     Indication: CONVULSION PROPHYLAXIS
     Route: 048

REACTIONS (1)
  - Gastrointestinal stoma complication [Unknown]
